FAERS Safety Report 6409558-4 (Version None)
Quarter: 2009Q4

REPORT INFORMATION
  Report Type: 
  Country: None (occurrence: None)
  Receive Date: 20091022
  Receipt Date: 20091013
  Transmission Date: 20100525
  Serious: Yes (Death, Hospitalization)
  Sender: FDA-Public Use
  Company Number: GB-RANBAXY-2009RR-28647

PATIENT
  Age: 51 Year
  Sex: Male

DRUGS (2)
  1. SERTRALINE HCL [Suspect]
     Indication: DEPRESSED MOOD
     Dosage: 150 MG, UNK
     Route: 048
     Dates: start: 20060101, end: 20080101
  2. CLOZARIL [Suspect]
     Indication: SCHIZOPHRENIA
     Dosage: UNK
     Dates: start: 20020131

REACTIONS (4)
  - CARDIAC ARREST [None]
  - NEUTROPHIL COUNT INCREASED [None]
  - PNEUMONIA [None]
  - WHITE BLOOD CELL COUNT INCREASED [None]
